FAERS Safety Report 21562516 (Version 2)
Quarter: 2022Q4

REPORT INFORMATION
  Report Type: Spontaneous
  Country: US (occurrence: US)
  Receive Date: 20221107
  Receipt Date: 20221117
  Transmission Date: 20230113
  Serious: Yes (Hospitalization)
  Sender: FDA-Public Use
  Company Number: US-VERTEX PHARMACEUTICALS-2022-016340

PATIENT
  Sex: Male

DRUGS (1)
  1. TRIKAFTA [Suspect]
     Active Substance: ELEXACAFTOR\IVACAFTOR\TEZACAFTOR
     Indication: Cystic fibrosis
     Dosage: FREQ UNK
     Route: 048
     Dates: start: 20200311, end: 202208

REACTIONS (6)
  - Hospitalisation [Unknown]
  - Mental disorder [Unknown]
  - Depression [Unknown]
  - Pulmonary function test decreased [Unknown]
  - Attention deficit hyperactivity disorder [Not Recovered/Not Resolved]
  - Behaviour disorder [Unknown]

NARRATIVE: CASE EVENT DATE: 20220101
